FAERS Safety Report 5992555-0 (Version None)
Quarter: 2008Q4

REPORT INFORMATION
  Report Type: 
  Country: None (occurrence: None)
  Receive Date: 20081211
  Receipt Date: 20081208
  Transmission Date: 20090506
  Serious: Yes (Other)
  Sender: FDA-Public Use
  Company Number: US-JNJCH-2008056857

PATIENT
  Age: 46 Year
  Sex: Female
  Weight: 56.7 kg

DRUGS (3)
  1. VISINE EYE DROPS [Suspect]
     Indication: OCULAR HYPERAEMIA
     Dosage: TEXT:1 OR 2 DROPS ONCE TO TWICE DAILY
     Route: 047
  2. DIOVAN [Concomitant]
     Indication: HYPERTENSION
     Dosage: TEXT:ONE TABLET DAILY
     Route: 065
  3. ORAL CONTRACEPTIVE NOS [Concomitant]
     Indication: CONTRACEPTION
     Dosage: TEXT:ONE TABLET DAILY
     Route: 065

REACTIONS (2)
  - MYDRIASIS [None]
  - PUPILLARY DISORDER [None]
